FAERS Safety Report 4996606-1 (Version None)
Quarter: 2006Q2

REPORT INFORMATION
  Report Type: 
  Country: None (occurrence: None)
  Receive Date: 20060505
  Receipt Date: 20060421
  Transmission Date: 20061013
  Serious: Yes (Hospitalization)
  Sender: FDA-Public Use
  Company Number: 192945

PATIENT
  Age: 57 Year
  Sex: Female
  Weight: 97.5234 kg

DRUGS (11)
  1. AVONEX [Suspect]
     Indication: MULTIPLE SCLEROSIS
     Dosage: 30 UG; QW; IM; SEE IMAGE
     Route: 030
     Dates: start: 20020101, end: 20030101
  2. AVONEX [Suspect]
     Indication: MULTIPLE SCLEROSIS
     Dosage: 30 UG; QW; IM
     Route: 030
     Dates: start: 20040101
  3. LISINOPRIL [Concomitant]
  4. TORSEMIDE [Concomitant]
  5. ^ LEVOZAL ^ [Concomitant]
  6. ESTROPIPATE [Concomitant]
  7. SYNTHROID [Concomitant]
  8. DARVOCET [Concomitant]
  9. TRAZODONE HCL [Concomitant]
  10. MIDRIN [Concomitant]
  11. PAXIL [Concomitant]

REACTIONS (12)
  - BRONCHITIS [None]
  - CHILLS [None]
  - COUGH [None]
  - DERMATITIS CONTACT [None]
  - EAR INFECTION [None]
  - GASTROOESOPHAGEAL REFLUX DISEASE [None]
  - HEADACHE [None]
  - INFLUENZA [None]
  - INFLUENZA LIKE ILLNESS [None]
  - NAUSEA [None]
  - SINUSITIS [None]
  - TOOTH FRACTURE [None]
